FAERS Safety Report 18584380 (Version 1)
Quarter: 2020Q4

REPORT INFORMATION
  Report Type: Other
  Country: KR (occurrence: KR)
  Receive Date: 20201207
  Receipt Date: 20201207
  Transmission Date: 20210114
  Serious: Yes (Life-Threatening, Hospitalization)
  Sender: FDA-Public Use
  Company Number: KR-AJANTA PHARMA USA INC.-2100687

PATIENT
  Age: 77 Year
  Sex: Female

DRUGS (3)
  1. ENTACAPONE (ANDA 205792) [Suspect]
     Active Substance: ENTACAPONE
     Route: 048
  2. LEVODOPA [Suspect]
     Active Substance: LEVODOPA
     Route: 048
  3. CARBIDOPA. [Suspect]
     Active Substance: CARBIDOPA
     Route: 048

REACTIONS (6)
  - Suicide attempt [Recovered/Resolved]
  - Intentional overdose [Recovered/Resolved]
  - Yellow skin [Recovered/Resolved]
  - Ocular icterus [Recovered/Resolved]
  - Loss of consciousness [Recovered/Resolved]
  - Chromaturia [Recovered/Resolved]
